FAERS Safety Report 6085970-0 (Version None)
Quarter: 2009Q1

REPORT INFORMATION
  Report Type: 
  Country: None (occurrence: None)
  Receive Date: 20090217
  Receipt Date: 20080328
  Transmission Date: 20090719
  Serious: Yes (Other)
  Sender: FDA-Public Use
  Company Number: MC200800166

PATIENT
  Sex: Female

DRUGS (6)
  1. ANGIOMAX [Suspect]
     Dosage: SEE IMAGE
     Route: 040
     Dates: start: 20080328, end: 20080328
  2. ANGIOMAX [Suspect]
     Dosage: SEE IMAGE
     Route: 040
     Dates: start: 20080328, end: 20080328
  3. ANGIOMAX [Suspect]
     Dosage: SEE IMAGE
     Route: 040
     Dates: start: 20080328, end: 20080328
  4. ANGIOMAX [Suspect]
     Dosage: SEE IMAGE
     Route: 040
     Dates: start: 20080328
  5. AMIODARONE (AMIODARONE) [Concomitant]
  6. FENTANYL-100 [Concomitant]

REACTIONS (2)
  - CARDIAC FIBRILLATION [None]
  - ELECTROCARDIOGRAM ABNORMAL [None]
